FAERS Safety Report 17868147 (Version 1)
Quarter: 2020Q2

REPORT INFORMATION
  Report Type: Spontaneous
  Country: JP (occurrence: JP)
  Receive Date: 20200605
  Receipt Date: 20200605
  Transmission Date: 20200714
  Serious: Yes (Other)
  Sender: FDA-Public Use
  Company Number: JP-GILEAD-2020-0469871

PATIENT
  Age: 36 Year
  Sex: Male

DRUGS (3)
  1. PENICILLIN-G [Concomitant]
     Active Substance: PENICILLIN G
     Indication: SYPHILIS
     Dosage: 2400 (X10,000) UNITS/DAY
  2. TRUVADA [Suspect]
     Active Substance: EMTRICITABINE\TENOFOVIR DISOPROXIL FUMARATE
     Indication: HIV INFECTION
     Dosage: UNK
     Route: 065
  3. DOLUTEGRAVIR SODIUM [Concomitant]
     Active Substance: DOLUTEGRAVIR SODIUM
     Indication: HIV INFECTION

REACTIONS (3)
  - Progressive multifocal leukoencephalopathy [Unknown]
  - Pneumonia aspiration [Unknown]
  - Immune reconstitution inflammatory syndrome [Unknown]
